FAERS Safety Report 6212113-2 (Version None)
Quarter: 2009Q2

REPORT INFORMATION
  Report Type: 
  Country: None (occurrence: None)
  Receive Date: 20090602
  Receipt Date: 20090525
  Transmission Date: 20091009
  Serious: Yes (Disabling)
  Sender: FDA-Public Use
  Company Number: PHHY2009CH20050

PATIENT
  Sex: Female

DRUGS (5)
  1. ZOMETA [Suspect]
     Indication: METASTASES TO BONE
     Dosage: 4 MG, QMO
     Route: 042
     Dates: start: 20070101
  2. ASPIRIN [Concomitant]
     Dosage: 100 MG/DAY
  3. BELOC ZOK [Concomitant]
     Dosage: UNK
  4. SEROPRAM [Concomitant]
     Dosage: UNK
  5. XELODA [Concomitant]
     Dosage: UNK
     Dates: end: 20080101

REACTIONS (4)
  - BONE DISORDER [None]
  - DEBRIDEMENT [None]
  - OSTEONECROSIS [None]
  - TOOTH EXTRACTION [None]
